FAERS Safety Report 14160463 (Version 1)
Quarter: 2017Q4

REPORT INFORMATION
  Report Type: Report from Study
  Country: None (occurrence: AR)
  Receive Date: 20171104
  Receipt Date: 20171104
  Transmission Date: 20180321
  Serious: Yes (Death, Hospitalization, Other)
  Sender: FDA-Public Use
  Company Number: AR-ABBVIE-17K-007-2122847-00

PATIENT
  Age: 78 Year
  Sex: Male

DRUGS (2)
  1. HUMIRA [Suspect]
     Active Substance: ADALIMUMAB
     Indication: RHEUMATOID ARTHRITIS
     Route: 058
     Dates: start: 20150130, end: 20170814
  2. HUMIRA [Suspect]
     Active Substance: ADALIMUMAB
     Route: 058
     Dates: start: 20170822

REACTIONS (9)
  - Post procedural complication [Unknown]
  - Dehydration [Fatal]
  - Diarrhoea [Unknown]
  - Urinary retention [Unknown]
  - Swelling [Unknown]
  - Urinary tract obstruction [Recovered/Resolved]
  - Urinary tract obstruction [Unknown]
  - Postoperative wound infection [Recovering/Resolving]
  - Constipation [Unknown]

NARRATIVE: CASE EVENT DATE: 2017
